FAERS Safety Report 7005178-1 (Version None)
Quarter: 2010Q3

REPORT INFORMATION
  Report Type: 
  Country: None (occurrence: None)
  Receive Date: 20100917
  Receipt Date: 20100909
  Transmission Date: 20110219
  Serious: Yes (Hospitalization)
  Sender: FDA-Public Use
  Company Number: 2010MA002552

PATIENT
  Age: 75 Year
  Sex: Female

DRUGS (3)
  1. DICLOFENAC SODIUM [Suspect]
     Dosage: 50 MG; TID; PO
     Route: 048
     Dates: start: 20100901
  2. LISINOPRIL [Suspect]
     Indication: HYPERTENSION
     Dosage: 10 MG; QD; PO
     Route: 048
     Dates: start: 20100701, end: 20100903
  3. BENDROFLUMETHIAZIDE [Concomitant]

REACTIONS (2)
  - ANGIOEDEMA [None]
  - DYSPNOEA [None]
